FAERS Safety Report 13590795 (Version 3)
Quarter: 2017Q3

REPORT INFORMATION
  Report Type: Spontaneous
  Country: US (occurrence: US)
  Receive Date: 20170530
  Receipt Date: 20170811
  Transmission Date: 20171127
  Serious: No
  Sender: FDA-Public Use
  Company Number: US-VERTEX PHARMACEUTICALS-2017-002829

PATIENT
  Age: 13 Year
  Sex: Female

DRUGS (17)
  1. ALBUTEROL. [Concomitant]
     Active Substance: ALBUTEROL
     Indication: CYSTIC FIBROSIS
  2. CREON [Concomitant]
     Active Substance: PANCRELIPASE AMYLASE\PANCRELIPASE LIPASE\PANCRELIPASE PROTEASE
     Dosage: 4 DF, TID BEFORE MEALS; 4 WITH MEALS AND 3 WITH SNACKS. 2 CAPSULES PRE MILK DRIP/ 1 POST MILK DRIP
     Route: 048
  3. PULMOZYME [Concomitant]
     Active Substance: DORNASE ALFA
     Indication: CYSTIC FIBROSIS LUNG
     Dosage: 2.5 MG BY NEBULIZATION, QD
     Route: 055
  4. HYPERSAL [Concomitant]
     Indication: CYSTIC FIBROSIS
     Dosage: 4 ML, BID
     Route: 055
  5. NEILMED SINUS RINSE [Concomitant]
     Active Substance: SODIUM BICARBONATE\SODIUM CHLORIDE
     Dosage: UNK, BID
     Route: 045
  6. ORKAMBI [Suspect]
     Active Substance: IVACAFTOR\LUMACAFTOR
     Indication: CYSTIC FIBROSIS
     Dosage: 2 DF (200/125MG EACH), BID
     Route: 048
     Dates: start: 201602, end: 201703
  7. ZITHROMAX [Concomitant]
     Active Substance: AZITHROMYCIN DIHYDRATE
     Dosage: 1 DF EVERY MON, WED, FRI
     Route: 048
  8. NASONEX [Concomitant]
     Active Substance: MOMETASONE FUROATE
     Indication: RHINITIS ALLERGIC
     Dosage: 2 DF EACH NARE, BID
     Route: 045
  9. PREVACID [Concomitant]
     Active Substance: LANSOPRAZOLE
     Dosage: 1 DF, BID
     Route: 048
  10. VITAMAX [Concomitant]
     Dosage: 1 DF, QD
     Route: 048
  11. ALBUTEROL. [Concomitant]
     Active Substance: ALBUTEROL
     Indication: ASTHMA
     Dosage: 2-8 PUFFS INTO THE LUNGS, EVERY 4 HRS, PRN
     Route: 055
  12. SYMBICORT [Concomitant]
     Active Substance: BUDESONIDE\FORMOTEROL FUMARATE DIHYDRATE
     Dosage: 2 PUFFS INTO THE LUNGS, BID
     Route: 055
  13. TOBI [Concomitant]
     Active Substance: TOBRAMYCIN
     Indication: CYSTIC FIBROSIS LUNG
     Dosage: INHALE 4 CAPS BY MOUTH, BID. 28 DAYS ON AND 28 DAYS OFF
     Route: 055
  14. ADDERALL [Concomitant]
     Active Substance: AMPHETAMINE ASPARTATE\AMPHETAMINE SULFATE\DEXTROAMPHETAMINE SACCHARATE\DEXTROAMPHETAMINE SULFATE
     Indication: ATTENTION DEFICIT/HYPERACTIVITY DISORDER
  15. CAYSTON [Concomitant]
     Active Substance: AZTREONAM
     Dosage: 1 ML, TID FOR 103 DAYS. 28 DAYS OFF AND 28 DAYS OFF, ALTERNATED WITH TOBI
     Route: 055
  16. CETIRIZINE [Concomitant]
     Active Substance: CETIRIZINE HYDROCHLORIDE
     Route: 048
  17. TOBI [Concomitant]
     Active Substance: TOBRAMYCIN
     Indication: BACTERIAL DISEASE CARRIER

REACTIONS (2)
  - Anxiety [Recovering/Resolving]
  - Depression [Recovered/Resolved]

NARRATIVE: CASE EVENT DATE: 201608
